FAERS Safety Report 6733911-2 (Version None)
Quarter: 2010Q2

REPORT INFORMATION
  Report Type: 
  Country: None (occurrence: None)
  Receive Date: 20100520
  Receipt Date: 20100518
  Transmission Date: 20101027
  Serious: Yes (Hospitalization)
  Sender: FDA-Public Use
  Company Number: FR-ROCHE-703569

PATIENT
  Sex: Male

DRUGS (16)
  1. ROCEPHIN [Suspect]
     Route: 048
     Dates: start: 20090119, end: 20090201
  2. PRAXILENE [Suspect]
     Route: 048
     Dates: end: 20090201
  3. BUMEX [Suspect]
     Route: 048
     Dates: end: 20090201
  4. CALCIPARINE [Suspect]
     Indication: DRUG USE FOR UNKNOWN INDICATION
     Dosage: STRENGTH: 7500 IU/0.3 ML,
     Route: 058
     Dates: start: 20090127
  5. CALCIPARINE [Suspect]
     Dosage: REDUCED
     Route: 058
  6. TAVANIC [Suspect]
     Dosage: FORM: DIVISIBLE COATED TABLET
     Route: 048
     Dates: start: 20090119, end: 20090201
  7. TAVANIC [Suspect]
     Dosage: REDUCED
     Route: 048
  8. ADVIL LIQUI-GELS [Suspect]
     Indication: DRUG USE FOR UNKNOWN INDICATION
     Route: 048
     Dates: start: 20090127, end: 20090201
  9. PRAVASTATIN SODIUM [Suspect]
     Indication: DRUG USE FOR UNKNOWN INDICATION
     Dosage: START DATE: LONG TERM
     Route: 048
     Dates: end: 20080201
  10. TAREG [Suspect]
     Dosage: FORM: DIVISIBLE COATED TABLET, START DATE: LONG TERM
     Route: 048
     Dates: end: 20080201
  11. KARDEGIC [Suspect]
     Dosage: FORM: SACHET
     Route: 048
     Dates: end: 20090129
  12. KARDEGIC [Suspect]
     Route: 048
     Dates: start: 20090204
  13. PLAVIX [Suspect]
     Dosage: AS LONG TERM TREATMENT, FORM: COATED TABLET
     Route: 048
  14. PLAVIX [Suspect]
     Dosage: REDUCED
     Route: 048
  15. ADANCOR [Concomitant]
     Dosage: START DATE: LONG TERM, 1 TAB IN MORNING AND 1 IN EVE
     Route: 048
  16. INSULATARD [Concomitant]
     Dosage: START DATE: LONG TERM, 20 IU IN MORNING AND 8 IN EVE
     Route: 058

REACTIONS (1)
  - GASTROINTESTINAL HAEMORRHAGE [None]
